FAERS Safety Report 10518928 (Version 1)
Quarter: 2014Q4

REPORT INFORMATION
  Report Type: Spontaneous
  Country: US (occurrence: None)
  Receive Date: 20141014
  Receipt Date: 20141014
  Transmission Date: 20150528
  Serious: No
  Sender: FDA-Public Use
  Company Number: None

PATIENT
  Age: 75 Year
  Sex: Male

DRUGS (1)
  1. TORVISTATIN [Suspect]
     Active Substance: ATORVASTATIN

REACTIONS (4)
  - Cough [None]
  - Accidental exposure to product [None]
  - Retching [None]
  - Foreign body [None]

NARRATIVE: CASE EVENT DATE: 20141002
